FAERS Safety Report 15140115 (Version 1)
Quarter: 2018Q3

REPORT INFORMATION
  Report Type: Report from Study
  Country: US (occurrence: AR)
  Receive Date: 20180713
  Receipt Date: 20180713
  Transmission Date: 20181010
  Serious: Yes (Death, Other)
  Sender: FDA-Public Use
  Company Number: US-SUNOVION-2018SUN002742

PATIENT
  Age: 86 Year
  Sex: Male

DRUGS (2)
  1. INDACATEROL [Suspect]
     Active Substance: INDACATEROL
     Indication: PNEUMONIA
     Dosage: 1 DF, QD
     Route: 055
  2. INDACATEROL AND GLYCOPYRROLATE [Suspect]
     Active Substance: GLYCOPYRROLATE\INDACATEROL MALEATE
     Indication: PNEUMONIA
     Dosage: 1 DF, QD
     Route: 055

REACTIONS (2)
  - Product use in unapproved indication [Unknown]
  - Respiratory failure [Fatal]

NARRATIVE: CASE EVENT DATE: 201710
